FAERS Safety Report 10578916 (Version 10)
Quarter: 2016Q1

REPORT INFORMATION
  Report Type: Spontaneous
  Country: US (occurrence: US)
  Receive Date: 20141112
  Receipt Date: 20160108
  Transmission Date: 20160525
  Serious: Yes (Hospitalization, Other)
  Sender: FDA-Public Use
  Company Number: US-PFIZER INC-2014311749

PATIENT
  Age: 59 Year
  Sex: Male
  Weight: 75 kg

DRUGS (8)
  1. SUTENT [Suspect]
     Active Substance: SUNITINIB MALATE
     Dosage: 50 MG ONCE A DAY, CYCLIC, (28 DAYS ON/14 DAYS OFF, IN THE EVENING BEFORE BED INSTEAD OF MORNING)
     Route: 048
     Dates: start: 20150601
  2. VALIUM [Concomitant]
     Active Substance: DIAZEPAM
     Dosage: UNK, AS NEEDED
  3. SYNTHROID [Concomitant]
     Active Substance: LEVOTHYROXINE SODIUM
     Indication: THYROID DISORDER
     Dosage: UNK
  4. LEVOTHYROXINE. [Concomitant]
     Active Substance: LEVOTHYROXINE
     Dosage: UNK
  5. XYLANTA [Concomitant]
     Indication: BONE DISORDER
     Dosage: UNK
  6. SUTENT [Suspect]
     Active Substance: SUNITINIB MALATE
     Indication: RENAL CELL CARCINOMA STAGE IV
     Dosage: 50 MG, CYCLIC, DAILY 4 WEEKS ON AND 2 WEEKS OFF
     Route: 048
     Dates: start: 201409, end: 201505
  7. HYDROCODONE BITARTRATE AND ACETAMINOPHEN [Concomitant]
     Active Substance: ACETAMINOPHEN\HYDROCODONE BITARTRATE
     Dosage: UNK, AS NEEDED
  8. ALBUTEROL. [Concomitant]
     Active Substance: ALBUTEROL
     Dosage: UNK, AS NEEDED
     Route: 055

REACTIONS (26)
  - Fatigue [Not Recovered/Not Resolved]
  - Diarrhoea [Recovered/Resolved]
  - Rash [Recovered/Resolved]
  - Sleep disorder [Unknown]
  - Thyroid disorder [Unknown]
  - Cholecystitis infective [Recovered/Resolved]
  - Dyspepsia [Not Recovered/Not Resolved]
  - Dysgeusia [Unknown]
  - Headache [Not Recovered/Not Resolved]
  - Renal cell carcinoma stage IV [Unknown]
  - Vomiting [Unknown]
  - Decreased appetite [Unknown]
  - Abdominal discomfort [Recovered/Resolved]
  - Pain [Recovering/Resolving]
  - Weight increased [Unknown]
  - Nausea [Unknown]
  - Malaise [Unknown]
  - Pain in extremity [Unknown]
  - Hyperkeratosis [Unknown]
  - Scratch [Unknown]
  - Disease progression [Unknown]
  - Memory impairment [Unknown]
  - Arthritis [Unknown]
  - Nasopharyngitis [Recovered/Resolved]
  - Bronchitis [Recovered/Resolved]
  - Weight decreased [Unknown]

NARRATIVE: CASE EVENT DATE: 2014
